FAERS Safety Report 5337089-1 (Version None)
Quarter: 2007Q2

REPORT INFORMATION
  Report Type: 
  Country: None (occurrence: None)
  Receive Date: 20070529
  Receipt Date: 20070528
  Transmission Date: 20071010
  Serious: Yes (Death, Hospitalization, Other)
  Sender: FDA-Public Use
  Company Number: GB-BRISTOL-MYERS SQUIBB COMPANY-13704531

PATIENT
  Age: 42 Year
  Sex: Female

DRUGS (9)
  1. PACLITAXEL [Suspect]
     Indication: BREAST CANCER
  2. DEXAMETHASONE [Concomitant]
  3. DOMPERIDONE [Concomitant]
  4. LANSOPRAZOLE [Concomitant]
  5. ONDANSETRON [Concomitant]
  6. PEGFILGRASTIM [Concomitant]
  7. MOTILIUM [Concomitant]
  8. ADRIAMYCIN PFS [Concomitant]
  9. CYCLOPHOSPHAMIDE [Concomitant]

REACTIONS (14)
  - BONE MARROW FAILURE [None]
  - CARDIAC ARREST [None]
  - CELLULITIS [None]
  - CLOSTRIDIAL INFECTION [None]
  - DIABETIC KETOACIDOTIC HYPERGLYCAEMIC COMA [None]
  - DISSEMINATED INTRAVASCULAR COAGULATION [None]
  - FEMALE GENITAL TRACT FISTULA [None]
  - MALIGNANT NEOPLASM PROGRESSION [None]
  - MYOCARDIAL INFARCTION [None]
  - NEUROPATHY [None]
  - NEUTROPENIC SEPSIS [None]
  - PANCREATITIS NECROTISING [None]
  - RENAL FAILURE [None]
  - SEPSIS [None]
